FAERS Safety Report 5373253-3 (Version None)
Quarter: 2007Q2

REPORT INFORMATION
  Report Type: 
  Country: None (occurrence: None)
  Receive Date: 20070628
  Receipt Date: 20070619
  Transmission Date: 20071010
  Serious: Yes (Disabling, Other)
  Sender: FDA-Public Use
  Company Number: PHBS2006IE17334

PATIENT
  Age: 23 Year
  Sex: Male
  Weight: 92.4 kg

DRUGS (7)
  1. CLOZARIL [Suspect]
     Indication: SCHIZOPHRENIA
     Dosage: 400MG  / DAY
     Route: 048
     Dates: start: 20050106
  2. CLOZARIL [Suspect]
     Dosage: 750MG / DAY
     Route: 048
     Dates: start: 20011219, end: 20050105
  3. SOLIAN [Concomitant]
     Indication: SCHIZOPHRENIA
     Dosage: 200MG / DAY
     Route: 048
     Dates: start: 20050106, end: 20050213
  4. SOLIAN [Concomitant]
     Dosage: 400MG / DAY
     Route: 048
     Dates: start: 20050214, end: 20050308
  5. SOLIAN [Concomitant]
     Dosage: 600MG / DAY
     Route: 048
     Dates: start: 20050309, end: 20050315
  6. SOLIAN [Concomitant]
     Dosage: 800MG / DAY
     Route: 048
     Dates: start: 20050316
  7. SERETIDE [Concomitant]
     Indication: ASTHMA
     Dates: start: 20050408

REACTIONS (1)
  - OBSESSIVE-COMPULSIVE DISORDER [None]
